FAERS Safety Report 11630465 (Version 1)
Quarter: 2015Q4

REPORT INFORMATION
  Report Type: Spontaneous
  Country: US (occurrence: US)
  Receive Date: 20151014
  Receipt Date: 20151014
  Transmission Date: 20160304
  Serious: No
  Sender: FDA-Public Use
  Company Number: US-UNICHEM LABORATORIES LIMITED-UCM201508-000576

PATIENT
  Sex: Female

DRUGS (5)
  1. METOPROLOL [Concomitant]
     Active Substance: METOPROLOL
     Indication: CARDIAC DISORDER
  2. HYDROCHLOROTHIAZIDE. [Suspect]
     Active Substance: HYDROCHLOROTHIAZIDE
     Indication: HYPERTENSION
  3. METOPROLOL [Concomitant]
     Active Substance: METOPROLOL
     Indication: HYPERTENSION
  4. HYDROCHLOROTHIAZIDE. [Suspect]
     Active Substance: HYDROCHLOROTHIAZIDE
     Indication: FLUID RETENTION
  5. METFORMIN [Concomitant]
     Active Substance: METFORMIN HYDROCHLORIDE
     Indication: DIABETES MELLITUS

REACTIONS (1)
  - Lip swelling [Recovered/Resolved]

NARRATIVE: CASE EVENT DATE: 20150809
